FAERS Safety Report 6673600-6 (Version None)
Quarter: 2010Q2

REPORT INFORMATION
  Report Type: 
  Country: None (occurrence: None)
  Receive Date: 20100408
  Receipt Date: 20100329
  Transmission Date: 20101027
  Serious: Yes (Other)
  Sender: FDA-Public Use
  Company Number: US-PFIZER INC-2010040334

PATIENT
  Sex: Female
  Weight: 126.98 kg

DRUGS (12)
  1. LIPITOR [Suspect]
     Indication: BLOOD CHOLESTEROL INCREASED
     Dosage: 10 MG, 1X/DAY
     Route: 048
     Dates: start: 20070101
  2. METFORMIN [Concomitant]
     Indication: BLOOD GLUCOSE INCREASED
     Dosage: 10 MG, 2X/DAY
  3. GLYBURIDE [Concomitant]
     Indication: BLOOD GLUCOSE INCREASED
     Dosage: 1000 MG, 2X/DAY
  4. ACTOS [Concomitant]
     Indication: BLOOD GLUCOSE INCREASED
     Dosage: 30 MG, 1X/DAY
  5. LISINOPRIL [Concomitant]
     Indication: HYPERTENSION
     Dosage: 20 MG, 1X/DAY
  6. DYAZIDE [Concomitant]
     Indication: HYPERTENSION
     Dosage: 37.2/25 MG, 1X/DAY
  7. POTASSIUM CHLORIDE [Concomitant]
     Indication: HYPERTENSION
     Dosage: 20 MEQ, 1X/DAY
  8. NORVASC [Concomitant]
     Dosage: 5 MG, 2X/DAY
  9. NEXIUM [Concomitant]
     Dosage: 40 MG, 2X/DAY
  10. PREMARIN [Concomitant]
     Dosage: 0.625 MG, 1X/DAY
  11. ACETYLSALICYLIC ACID [Concomitant]
     Indication: PROPHYLAXIS
     Dosage: 325 MG, 1X/DAY
  12. LUMIGAN [Concomitant]
     Dosage: UNK

REACTIONS (5)
  - ACTIVITIES OF DAILY LIVING IMPAIRED [None]
  - FATIGUE [None]
  - MUSCLE TWITCHING [None]
  - MUSCULAR WEAKNESS [None]
  - PAIN [None]
